FAERS Safety Report 4745223-7 (Version None)
Quarter: 2005Q3

REPORT INFORMATION
  Report Type: 
  Country: None (occurrence: None)
  Receive Date: 20050812
  Receipt Date: 20050803
  Transmission Date: 20060218
  Serious: Yes (Other)
  Sender: FDA-Public Use
  Company Number: 2005112313

PATIENT
  Age: 17 Year
  Sex: Male

DRUGS (2)
  1. TERRAMYCIN [Suspect]
     Indication: ACNE
     Dosage: 1000 MG (500 MG 2 IN 1 D) ORAL
     Route: 048
     Dates: start: 20040218, end: 20050718
  2. ADAPALENE (ADAPALENE) [Concomitant]

REACTIONS (2)
  - ALANINE AMINOTRANSFERASE INCREASED [None]
  - HEPATITIS [None]
